FAERS Safety Report 6133883-8 (Version None)
Quarter: 2009Q1

REPORT INFORMATION
  Report Type: 
  Country: None (occurrence: None)
  Receive Date: 20090326
  Receipt Date: 20090318
  Transmission Date: 20090719
  Serious: Yes (Other)
  Sender: FDA-Public Use
  Company Number: PHEH2008US07357

PATIENT
  Sex: Female

DRUGS (2)
  1. ZOMETA [Suspect]
  2. CHEMOTHERAPEUTICS NOS [Concomitant]

REACTIONS (6)
  - ANXIETY [None]
  - DENTAL CARIES [None]
  - GENERAL PHYSICAL HEALTH DETERIORATION [None]
  - OSTEONECROSIS [None]
  - PAIN [None]
  - SURGERY [None]
